FAERS Safety Report 4385837-X (Version None)
Quarter: 2004Q2

REPORT INFORMATION
  Report Type: 
  Country: None (occurrence: None)
  Receive Date: 20040622
  Receipt Date: 20040616
  Transmission Date: 20050107
  Serious: Yes (Death)
  Sender: FDA-Public Use
  Company Number: MK200406-0010-2

PATIENT
  Age: 24 Year
  Sex: Female

DRUGS (4)
  1. TOFRANIL [Suspect]
  2. PHENOBARBITAL TAB [Suspect]
  3. AMOBARBITAL [Suspect]
  4. BROMVALERYLUREA [Suspect]

REACTIONS (8)
  - ASPHYXIA [None]
  - COMPLICATIONS OF MATERNAL EXPOSURE TO THERAPEUTIC DRUGS [None]
  - DRUG EXPOSURE DURING PREGNANCY [None]
  - DRUG INTERACTION [None]
  - DRUG TOXICITY [None]
  - PETECHIAE [None]
  - RESPIRATORY DISORDER [None]
  - URINE ABNORMALITY [None]
